FAERS Safety Report 5072444-9 (Version None)
Quarter: 2006Q3

REPORT INFORMATION
  Report Type: 
  Country: None (occurrence: None)
  Receive Date: 20060801
  Receipt Date: 20060719
  Transmission Date: 20061208
  Serious: Yes (Other)
  Sender: FDA-Public Use
  Company Number: 2006090345

PATIENT
  Age: 13 Year
  Sex: Male

DRUGS (1)
  1. EPELIN SUSPENSION (PHENYTOIN  SODIUM) [Suspect]
     Indication: PETIT MAL EPILEPSY
     Dosage: 220 MG (2 IN 1 D), ORAL
     Route: 048

REACTIONS (5)
  - CONDITION AGGRAVATED [None]
  - INCORRECT DOSE ADMINISTERED [None]
  - PETIT MAL EPILEPSY [None]
  - PHARMACEUTICAL PRODUCT COMPLAINT [None]
  - VOMITING [None]
